FAERS Safety Report 20231658 (Version 5)
Quarter: 2025Q1

REPORT INFORMATION
  Report Type: Report from Study
  Country: US (occurrence: US)
  Receive Date: 20211227
  Receipt Date: 20250208
  Transmission Date: 20250409
  Serious: Yes (Hospitalization)
  Sender: AVEO PHARMACEUTICALS
  Company Number: US-AVEO ONCOLOGY-2021-AVEO-US003625

PATIENT

DRUGS (18)
  1. FOTIVDA [Suspect]
     Active Substance: TIVOZANIB HYDROCHLORIDE
     Indication: Renal cell carcinoma
     Dosage: 1.34 MG, DAILY FOR 1-21 DAYS EVERY 28 DAYS
     Route: 048
     Dates: start: 20210921
  2. TYLENOL [Concomitant]
     Active Substance: ACETAMINOPHEN
  3. ALPHA LIPOIC ACID [Concomitant]
     Active Substance: .ALPHA.-LIPOIC ACID
  4. AMLODIPINE [Concomitant]
     Active Substance: AMLODIPINE BESYLATE
  5. GLUCOSAMINE [Concomitant]
     Active Substance: GLUCOSAMINE
  6. COENZYME Q10 [Concomitant]
     Active Substance: DIETARY SUPPLEMENT\UBIDECARENONE
  7. COLACE [Concomitant]
     Active Substance: DOCUSATE SODIUM
  8. CULTURELLE [Concomitant]
     Active Substance: LACTOBACILLUS RHAMNOSUS
  9. GARLIC NATURAL [Concomitant]
  10. HYDROXYZINE [Concomitant]
     Active Substance: HYDROXYZINE HYDROCHLORIDE
  11. LEVOTHYROXINE [Concomitant]
     Active Substance: LEVOTHYROXINE
  12. MAGNESIUM OXIDE [Concomitant]
     Active Substance: MAGNESIUM OXIDE
  13. MELATONIN [Concomitant]
     Active Substance: MELATONIN
  14. ONDANSETRON [Concomitant]
     Active Substance: ONDANSETRON
  15. PEPCID [Concomitant]
     Active Substance: FAMOTIDINE
  16. SENNA S [Concomitant]
     Active Substance: DOCUSATE SODIUM\SENNOSIDES
  17. VITAMIN D3 [Concomitant]
     Active Substance: CHOLECALCIFEROL
  18. MENAQUINONE 6 [Concomitant]
     Active Substance: MENAQUINONE 6

REACTIONS (9)
  - Infection [Unknown]
  - Hernia repair [Unknown]
  - Fatigue [Unknown]
  - Decreased appetite [Unknown]
  - Dysphonia [Unknown]
  - Weight decreased [Unknown]
  - Laboratory test abnormal [Unknown]
  - Glossodynia [Unknown]
  - Dyspnoea [Unknown]
